FAERS Safety Report 9451480 (Version 1)
Quarter: 2013Q3

REPORT INFORMATION
  Report Type: Spontaneous
  Country: US (occurrence: US)
  Receive Date: 20130810
  Receipt Date: 20130810
  Transmission Date: 20140515
  Serious: No
  Sender: FDA-Public Use
  Company Number: US-B.I. PHARMACEUTICALS,INC./RIDGEFIELD-2013-BI-23537BP

PATIENT
  Age: 75 Year
  Sex: Male

DRUGS (16)
  1. SPIRIVA [Suspect]
     Indication: CHRONIC OBSTRUCTIVE PULMONARY DISEASE
     Dosage: 18 MCG
     Route: 055
     Dates: start: 201302
  2. SPIRIVA [Suspect]
     Dosage: 18 MCG
     Route: 048
     Dates: start: 201302
  3. TRAMADOL [Concomitant]
     Indication: ARTHRITIS
     Dosage: (TABLET) STRENGTH: 50 MG; DAILY DOSE: 150 MG
     Route: 048
  4. VITAMIN B COMPLEX [Concomitant]
  5. LORATADINE [Concomitant]
     Indication: SEASONAL ALLERGY
     Dosage: (TABLET) STRENGTH: 10 MG; DAILY DOSE: 10 MG
     Route: 048
  6. BUSPAR [Concomitant]
     Indication: ANXIETY
     Route: 048
  7. ARICEPT [Concomitant]
     Indication: DEMENTIA
     Dosage: (TABLET) STRENGTH: 10 MG; DAILY DOSE: 10 MG
     Route: 048
  8. CINNAMON TABLET TABLET [Concomitant]
     Indication: DIABETES MELLITUS
     Dosage: (TABLET)
     Route: 048
  9. VITAMIN D 3 [Concomitant]
     Route: 048
  10. ASMINEX [Concomitant]
     Indication: CHRONIC OBSTRUCTIVE PULMONARY DISEASE
     Route: 055
  11. SPIRONOLACTONE [Concomitant]
     Indication: HYPERTENSION
     Dosage: 25 MG
     Route: 048
  12. FINASTERIDE [Concomitant]
     Indication: PROSTATOMEGALY
     Dosage: 5 MG
     Route: 048
  13. CALCIUM +D [Concomitant]
     Route: 048
  14. VENTOLIN INHALER [Concomitant]
     Indication: CHRONIC OBSTRUCTIVE PULMONARY DISEASE
     Route: 055
  15. VITAMIN E [Concomitant]
     Route: 048
  16. METFORMIN [Concomitant]
     Indication: DIABETES MELLITUS
     Dosage: 1000 MG
     Route: 048

REACTIONS (4)
  - Abdominal pain upper [Not Recovered/Not Resolved]
  - Pyrexia [Not Recovered/Not Resolved]
  - Confusional state [Not Recovered/Not Resolved]
  - Incorrect route of drug administration [Recovered/Resolved]
